FAERS Safety Report 17126660 (Version 1)
Quarter: 2019Q4

REPORT INFORMATION
  Report Type: Spontaneous
  Country: US (occurrence: US)
  Receive Date: 20191209
  Receipt Date: 20191209
  Transmission Date: 20200122
  Serious: No
  Sender: FDA-Public Use
  Company Number: US-UCBSA-2017015370

PATIENT
  Sex: Female
  Weight: 56.82 kg

DRUGS (2)
  1. KEPPRA [Suspect]
     Active Substance: LEVETIRACETAM
     Indication: OFF LABEL USE
     Dosage: 3000 MG DAILY
  2. KEPPRA [Suspect]
     Active Substance: LEVETIRACETAM
     Indication: SEIZURE PROPHYLAXIS
     Dosage: ESCALATING DOSE

REACTIONS (3)
  - Off label use [Unknown]
  - Depression [Unknown]
  - Irritability [Unknown]
